FAERS Safety Report 10160456 (Version 1)
Quarter: 2014Q2

REPORT INFORMATION
  Report Type: Spontaneous
  Country: US (occurrence: None)
  Receive Date: 20140507
  Receipt Date: 20140507
  Transmission Date: 20141212
  Serious: Yes (Disabling)
  Sender: FDA-Public Use
  Company Number: None

PATIENT
  Age: 60 Year
  Sex: Male
  Weight: 97.52 kg

DRUGS (13)
  1. TRIBENZOR [Suspect]
     Indication: HYPERTENSION
     Route: 048
     Dates: start: 20120625
  2. SULFA [Concomitant]
  3. ALLOPURINOL [Concomitant]
  4. CHOLESTAGEL [Concomitant]
  5. KLOR-CON [Concomitant]
  6. METFORMIN [Concomitant]
  7. NAPROXEN [Concomitant]
  8. TRIBENZOR [Concomitant]
  9. CLONZEPAM [Concomitant]
  10. MEN^S DAILY [Concomitant]
  11. FISH OIL [Concomitant]
  12. LOW DOSE ASPIRIN [Concomitant]
  13. VITAMIN C [Concomitant]

REACTIONS (2)
  - Foot fracture [None]
  - Impaired healing [None]
